FAERS Safety Report 14471486 (Version 4)
Quarter: 2018Q3

REPORT INFORMATION
  Report Type: Spontaneous
  Country: US (occurrence: US)
  Receive Date: 20180131
  Receipt Date: 20180911
  Transmission Date: 20181010
  Serious: No
  Sender: FDA-Public Use
  Company Number: US-PFIZER INC-2018043071

PATIENT
  Age: 94 Year
  Sex: Female

DRUGS (3)
  1. LEVOXYL [Suspect]
     Active Substance: LEVOTHYROXINE SODIUM
     Dosage: UNK
  2. LEVOXYL [Suspect]
     Active Substance: LEVOTHYROXINE SODIUM
     Dosage: UNK
  3. LEVOXYL [Suspect]
     Active Substance: LEVOTHYROXINE SODIUM
     Dosage: 75 UG, DAILY [1 TABLET(25 MCG)BY MOUTH DAILY IN THE MORNING ON AN EMPTY STOMACH WITH LEVOXYL 50 MCG]
     Route: 048
     Dates: start: 2017

REACTIONS (4)
  - Pain [Unknown]
  - Intentional product misuse [Unknown]
  - Headache [Unknown]
  - Palpitations [Unknown]
